FAERS Safety Report 9962886 (Version 1)
Quarter: 2014Q1

REPORT INFORMATION
  Report Type: Report from Study
  Country: US (occurrence: US)
  Receive Date: 20140305
  Receipt Date: 20140305
  Transmission Date: 20141002
  Serious: No
  Sender: FDA-Public Use
  Company Number: US-ABBVIE-13P-163-1113945-00

PATIENT
  Age: 50 Year
  Sex: Female
  Weight: 79.45 kg

DRUGS (5)
  1. HUMIRA [Suspect]
     Indication: PSORIATIC ARTHROPATHY
     Dates: start: 20130308
  2. HUMIRA [Suspect]
     Indication: PSORIASIS
  3. VITAMIN D [Concomitant]
     Indication: VITAMIN D DEFICIENCY
  4. TOPOMAX [Concomitant]
     Indication: PROPHYLAXIS
  5. ASPIRIN [Concomitant]
     Indication: PROPHYLAXIS

REACTIONS (1)
  - Oral pain [Not Recovered/Not Resolved]
